FAERS Safety Report 13590367 (Version 1)
Quarter: 2017Q2

REPORT INFORMATION
  Report Type: Spontaneous
  Country: US (occurrence: US)
  Receive Date: 20170529
  Receipt Date: 20170529
  Transmission Date: 20170830
  Serious: Yes (Hospitalization)
  Sender: FDA-Public Use
  Company Number: None

PATIENT
  Age: 11 Year
  Sex: Male
  Weight: 34.2 kg

DRUGS (4)
  1. ONFI [Concomitant]
     Active Substance: CLOBAZAM
  2. LAMOTRIGINE. [Concomitant]
     Active Substance: LAMOTRIGINE
  3. KEPPRA [Concomitant]
     Active Substance: LEVETIRACETAM
  4. TRILEPTAL [Suspect]
     Active Substance: OXCARBAZEPINE
     Indication: SEIZURE
     Route: 048
     Dates: end: 20170326

REACTIONS (3)
  - Rash pruritic [None]
  - Rash erythematous [None]
  - Rash [None]

NARRATIVE: CASE EVENT DATE: 20170325
